FAERS Safety Report 12835197 (Version 2)
Quarter: 2016Q4

REPORT INFORMATION
  Report Type: Spontaneous
  Country: US (occurrence: US)
  Receive Date: 20161011
  Receipt Date: 20161012
  Transmission Date: 20170207
  Serious: No
  Sender: FDA-Public Use
  Company Number: US-TAIHO ONCOLOGY INC-EU-2016-02586

PATIENT
  Age: 57 Year
  Sex: Female

DRUGS (5)
  1. ONDANSETRON [Concomitant]
     Active Substance: ONDANSETRON
     Dosage: NI
  2. IBUPROFEN. [Concomitant]
     Active Substance: IBUPROFEN
     Dosage: NI
  3. HYDROCODONE [Concomitant]
     Active Substance: HYDROCODONE
     Dosage: NI
  4. LONSURF [Suspect]
     Active Substance: TIPIRACIL HYDROCHLORIDE\TRIFLURIDINE
     Indication: COLON CANCER
     Route: 048
     Dates: start: 20160817
  5. LISINOPRIL. [Concomitant]
     Active Substance: LISINOPRIL
     Dosage: NI

REACTIONS (5)
  - Nausea [Unknown]
  - Decreased appetite [Unknown]
  - Dysgeusia [Unknown]
  - Vomiting [Unknown]
  - Fatigue [Unknown]

NARRATIVE: CASE EVENT DATE: 201609
